FAERS Safety Report 24720325 (Version 1)
Quarter: 2024Q4

REPORT INFORMATION
  Report Type: Spontaneous
  Country: US (occurrence: US)
  Receive Date: 20241211
  Receipt Date: 20241211
  Transmission Date: 20250114
  Serious: Yes (Hospitalization)
  Sender: LEO PHARM
  Company Number: US-LEO Pharma-375782

PATIENT
  Age: 65 Year
  Sex: Female

DRUGS (4)
  1. ADBRY [Suspect]
     Active Substance: TRALOKINUMAB-LDRM
     Indication: Dyshidrotic eczema
     Dosage: TREATMENT IS ONGOING
     Route: 058
     Dates: start: 20240807
  2. ADBRY [Suspect]
     Active Substance: TRALOKINUMAB-LDRM
     Indication: Dyshidrotic eczema
     Dosage: TREATMENT IS ONGOING
     Route: 058
     Dates: start: 20240807
  3. ADBRY [Suspect]
     Active Substance: TRALOKINUMAB-LDRM
     Indication: Dermatitis atopic
     Dosage: TREATMENT IS ONGOING
     Route: 058
     Dates: start: 20240807
  4. ADBRY [Suspect]
     Active Substance: TRALOKINUMAB-LDRM
     Indication: Dermatitis atopic
     Dosage: TREATMENT IS ONGOING
     Route: 058
     Dates: start: 20240807

REACTIONS (2)
  - Stomatitis [Unknown]
  - Product use in unapproved indication [Not Recovered/Not Resolved]

NARRATIVE: CASE EVENT DATE: 20240101
